FAERS Safety Report 16640345 (Version 3)
Quarter: 2019Q3

REPORT INFORMATION
  Report Type: Spontaneous
  Country: JP (occurrence: JP)
  Receive Date: 20190728
  Receipt Date: 20190815
  Transmission Date: 20191004
  Serious: Yes (Other)
  Sender: FDA-Public Use
  Company Number: GXJP2019JP001461

PATIENT
  Age: 89 Year
  Sex: Male

DRUGS (22)
  1. GLUFAST [Concomitant]
     Active Substance: MITIGLINIDE
     Indication: PRODUCT USED FOR UNKNOWN INDICATION
     Dosage: 10 MG, TID (IMMEDIATELY BEFORE FINISHING BREAKFAST, LUNCH, AND DINNER)
     Route: 048
     Dates: end: 20190722
  2. VANCOMYCIN [Concomitant]
     Active Substance: VANCOMYCIN
     Dosage: 750 MG, UNK
     Route: 041
     Dates: start: 20190724
  3. DAIPHEN [Suspect]
     Active Substance: SULFAMETHOXAZOLE\TRIMETHOPRIM
     Dosage: 2 DF, BID (AFTER BREAKFAST AND DINNER)
     Route: 048
     Dates: start: 20190720, end: 20190722
  4. TRAZENTA [Concomitant]
     Active Substance: LINAGLIPTIN
     Indication: PRODUCT USED FOR UNKNOWN INDICATION
     Dosage: 5 MG, QD (AFTER BREAKFAST)
     Route: 048
     Dates: end: 20190722
  5. AMBROXOL HYDROCHLORIDE [Concomitant]
     Active Substance: AMBROXOL HYDROCHLORIDE
     Indication: PRODUCT USED FOR UNKNOWN INDICATION
     Dosage: 15 MG, TID (AFTER BREAKFAST, LUNCH, AND DINNER)
     Route: 048
     Dates: end: 20190722
  6. MEROPENEM. [Concomitant]
     Active Substance: MEROPENEM
     Dosage: UNK
     Route: 041
     Dates: start: 20190722
  7. DAIPHEN [Suspect]
     Active Substance: SULFAMETHOXAZOLE\TRIMETHOPRIM
     Indication: SPONDYLITIS
     Dosage: 2 DF, BID (AFTER BREAKFAST AND DINNER)
     Route: 048
     Dates: start: 20190717, end: 20190719
  8. MINOCYCLINE [Suspect]
     Active Substance: MINOCYCLINE HYDROCHLORIDE
     Indication: SPONDYLITIS
     Dosage: 100 MG, BID
     Route: 048
     Dates: start: 20190717, end: 20190720
  9. MAGNESIUM OXIDE. [Concomitant]
     Active Substance: MAGNESIUM OXIDE
     Indication: PRODUCT USED FOR UNKNOWN INDICATION
     Dosage: 330 MG, BID
     Route: 048
     Dates: end: 20190722
  10. MEROPENEM. [Concomitant]
     Active Substance: MEROPENEM
     Indication: SPONDYLITIS
     Dosage: UNK
     Route: 041
  11. VANCOMYCIN [Concomitant]
     Active Substance: VANCOMYCIN
     Dosage: 1500 MG, UNK
     Route: 041
     Dates: start: 20190723
  12. MAGNESIUM OXIDE. [Concomitant]
     Active Substance: MAGNESIUM OXIDE
     Dosage: 330 MG, BID
     Route: 048
     Dates: start: 20190724
  13. GLUFAST [Concomitant]
     Active Substance: MITIGLINIDE
     Dosage: 10 MG, TID
     Route: 048
     Dates: start: 20190724
  14. TAMSULOSIN HYDROCHLORIDE. [Concomitant]
     Active Substance: TAMSULOSIN HYDROCHLORIDE
     Indication: PRODUCT USED FOR UNKNOWN INDICATION
     Dosage: 0.2 MG, QD (AFTER BREAKFAST)
     Route: 048
     Dates: start: 20190718, end: 20190722
  15. VANCOMYCIN [Concomitant]
     Active Substance: VANCOMYCIN
     Indication: SPONDYLITIS
     Dosage: 1500 MG, QD
     Route: 041
     Dates: start: 20190702
  16. VANCOMYCIN [Concomitant]
     Active Substance: VANCOMYCIN
     Dosage: 1000 MG, QD
     Route: 041
     Dates: start: 20190703
  17. VANCOMYCIN [Concomitant]
     Active Substance: VANCOMYCIN
     Dosage: 750 MG, QD
  18. VANCOMYCIN [Concomitant]
     Active Substance: VANCOMYCIN
     Dosage: 500 MG, UNK
     Route: 041
     Dates: start: 20190725
  19. RIFAMPICIN CAPSULES [Suspect]
     Active Substance: RIFAMPIN
     Indication: SPONDYLITIS
     Dosage: 450 MG, QD
     Route: 048
     Dates: start: 20190717, end: 20190722
  20. LANSOPRAZOLE. [Concomitant]
     Active Substance: LANSOPRAZOLE
     Indication: PRODUCT USED FOR UNKNOWN INDICATION
     Dosage: 15 MG, QD (AFTER BREAKFAST)
     Route: 048
     Dates: end: 20190722
  21. VANCOMYCIN [Concomitant]
     Active Substance: VANCOMYCIN
     Dosage: 750 MG, UNK
     Route: 041
     Dates: start: 20190725
  22. MINOCYCLINE [Suspect]
     Active Substance: MINOCYCLINE HYDROCHLORIDE
     Dosage: 100 MG, BID
     Route: 048
     Dates: start: 20190721, end: 20190722

REACTIONS (4)
  - Parkinson^s disease [Unknown]
  - Tremor [Recovered/Resolved]
  - Depressed level of consciousness [Unknown]
  - Renal impairment [Unknown]

NARRATIVE: CASE EVENT DATE: 20190719
